FAERS Safety Report 18684243 (Version 1)
Quarter: 2020Q4

REPORT INFORMATION
  Report Type: Spontaneous
  Country: FR (occurrence: FR)
  Receive Date: 20201230
  Receipt Date: 20201230
  Transmission Date: 20210114
  Serious: Yes (Hospitalization)
  Sender: FDA-Public Use
  Company Number: FR-TEVA-2020-FR-1862878

PATIENT
  Age: 61 Year
  Sex: Female
  Weight: 59 kg

DRUGS (11)
  1. METOPROLOL (TARTRATE DE) [Concomitant]
     Active Substance: METOPROLOL TARTRATE
  2. FUROSEMIDE. [Concomitant]
     Active Substance: FUROSEMIDE
  3. HUMALOG [Concomitant]
     Active Substance: INSULIN LISPRO
  4. LANSOPRAZOLE. [Concomitant]
     Active Substance: LANSOPRAZOLE
  5. PRAVASTATINE SODIQUE [Concomitant]
     Active Substance: PRAVASTATIN SODIUM
  6. DOXYCYCLINE. [Suspect]
     Active Substance: DOXYCYCLINE
     Indication: AMPUTATION
     Dosage: 200 MG
     Route: 048
     Dates: start: 20191225, end: 20200111
  7. ASPIRINE [Concomitant]
     Active Substance: ASPIRIN
  8. RIFAMPICINE [Suspect]
     Active Substance: RIFAMPIN
     Indication: AMPUTATION
     Dosage: 1200 MG
     Route: 048
     Dates: start: 20191220, end: 20200111
  9. ABASAGLAR [Concomitant]
     Active Substance: INSULIN GLARGINE
  10. RAMIPRIL. [Concomitant]
     Active Substance: RAMIPRIL
  11. NICORANDIL [Concomitant]
     Active Substance: NICORANDIL

REACTIONS (9)
  - Clostridium difficile colitis [Recovered/Resolved]
  - Vomiting [Recovered/Resolved]
  - Weight decreased [Recovered/Resolved]
  - Diarrhoea [Recovered/Resolved]
  - Hypokalaemia [Recovered/Resolved]
  - Asthenia [Recovered/Resolved]
  - Hyperleukocytosis [Recovered/Resolved]
  - Decreased appetite [Recovered/Resolved]
  - Malaise [Recovered/Resolved]

NARRATIVE: CASE EVENT DATE: 20200108
